FAERS Safety Report 17786316 (Version 1)
Quarter: 2020Q2

REPORT INFORMATION
  Report Type: Spontaneous
  Country: US (occurrence: US)
  Receive Date: 20200513
  Receipt Date: 20200513
  Transmission Date: 20200714
  Serious: Yes (Hospitalization)
  Sender: FDA-Public Use
  Company Number: US-CELGENEUS-USA-20200502452

PATIENT
  Sex: Male

DRUGS (4)
  1. THALOMID [Suspect]
     Active Substance: THALIDOMIDE
     Dosage: 100-50 MILLIGRAM
     Route: 048
     Dates: start: 201811
  2. THALOMID [Suspect]
     Active Substance: THALIDOMIDE
     Dosage: 100 MILLIGRAM
     Route: 048
     Dates: start: 201812
  3. THALOMID [Suspect]
     Active Substance: THALIDOMIDE
     Indication: OFF LABEL USE
     Dosage: 50-100 MILLIGRAM
     Route: 048
     Dates: start: 201706
  4. THALOMID [Suspect]
     Active Substance: THALIDOMIDE
     Indication: MONOCLONAL GAMMOPATHY
     Dosage: 100 MILLIGRAM
     Route: 048
     Dates: start: 201705

REACTIONS (1)
  - Anaemia [Unknown]
